FAERS Safety Report 16879057 (Version 1)
Quarter: 2019Q4

REPORT INFORMATION
  Report Type: Report from Study
  Country: None (occurrence: US)
  Receive Date: 20191002
  Receipt Date: 20191002
  Transmission Date: 20200122
  Serious: Yes (Other)
  Sender: FDA-Public Use
  Company Number: US-ABBVIE-19K-163-2941803-00

PATIENT
  Sex: Female

DRUGS (1)
  1. HUMIRA [Suspect]
     Active Substance: ADALIMUMAB
     Indication: CROHN^S DISEASE
     Route: 058

REACTIONS (11)
  - Injection site erythema [Recovering/Resolving]
  - Injection site hypersensitivity [Unknown]
  - Unresponsive to stimuli [Unknown]
  - Respiratory rate increased [Unknown]
  - Stress [Unknown]
  - Crohn^s disease [Unknown]
  - Adverse event [Unknown]
  - Blood pressure decreased [Unknown]
  - Cold sweat [Unknown]
  - Erythema [Unknown]
  - Diarrhoea [Unknown]
